FAERS Safety Report 5786826-0 (Version None)
Quarter: 2008Q2

REPORT INFORMATION
  Report Type: 
  Country: None (occurrence: None)
  Receive Date: 20080618
  Receipt Date: 20080610
  Transmission Date: 20081010
  Serious: Yes (Other)
  Sender: FDA-Public Use
  Company Number: 100#03#2008-03105

PATIENT
  Age: 22 Year
  Sex: Male

DRUGS (1)
  1. DOXYCYCLINE [Suspect]
     Indication: DRUG USE FOR UNKNOWN INDICATION
     Dosage: 100 MG TWICE DAILY; ORAL
     Route: 048
     Dates: start: 20080501, end: 20080507

REACTIONS (2)
  - COMMUNICATION DISORDER [None]
  - PALPITATIONS [None]
